FAERS Safety Report 10410671 (Version 3)
Quarter: 2015Q2

REPORT INFORMATION
  Report Type: Report from Study
  Country: IT (occurrence: IT)
  Receive Date: 20140826
  Receipt Date: 20150522
  Transmission Date: 20150821
  Serious: Yes (Hospitalization)
  Sender: FDA-Public Use
  Company Number: IT-OTSUKA-US-2014-12208

PATIENT

DRUGS (5)
  1. ROCALTROL [Concomitant]
     Active Substance: CALCITRIOL
     Indication: BLOOD PARATHYROID HORMONE INCREASED
     Dosage: 0.25 MG, QD
     Route: 048
     Dates: start: 20140628
  2. NORVASC [Concomitant]
     Active Substance: AMLODIPINE BESYLATE
     Indication: HYPERTENSION
     Dosage: 2.5 MG, QD
     Route: 048
     Dates: start: 20101104
  3. TOLVAPTAN [Suspect]
     Active Substance: TOLVAPTAN
     Dosage: 45/15 MG MILLIGRAM(S), DAILY DOSE
     Route: 048
     Dates: start: 20140820
  4. TOLVAPTAN [Suspect]
     Active Substance: TOLVAPTAN
     Indication: CONGENITAL CYSTIC KIDNEY DISEASE
     Dosage: 60/30 MG MILLIGRAM(S), DAILY DOSE
     Route: 048
     Dates: start: 20120305, end: 20140819
  5. TRIATEC [Concomitant]
     Active Substance: RAMIPRIL
     Indication: HYPERTENSION
     Dosage: 10 MG, QD
     Route: 048
     Dates: start: 20080902

REACTIONS (1)
  - Renal impairment [Recovered/Resolved]

NARRATIVE: CASE EVENT DATE: 20140819
